FAERS Safety Report 5491423-0 (Version None)
Quarter: 2007Q4

REPORT INFORMATION
  Report Type: 
  Country: None (occurrence: None)
  Receive Date: 20071018
  Receipt Date: 20071005
  Transmission Date: 20080405
  Serious: Yes (Death)
  Sender: FDA-Public Use
  Company Number: 2007S1009360

PATIENT
  Age: 39 Year
  Sex: Male
  Weight: 71 kg

DRUGS (3)
  1. METOPROLOL TARTRATE [Suspect]
  2. DIGOXIN [Suspect]
  3. VERAPAMIL [Suspect]

REACTIONS (6)
  - BRADYCARDIA [None]
  - CARDIAC FAILURE [None]
  - DRUG INTERACTION POTENTIATION [None]
  - DRUG TOXICITY [None]
  - HYPOTENSION [None]
  - MULTIPLE DRUG OVERDOSE [None]
